FAERS Safety Report 6696501-6 (Version None)
Quarter: 2010Q2

REPORT INFORMATION
  Report Type: 
  Country: None (occurrence: None)
  Receive Date: 20100426
  Receipt Date: 20100416
  Transmission Date: 20101027
  Serious: Yes (Hospitalization)
  Sender: FDA-Public Use
  Company Number: GB-ROCHE-698018

PATIENT
  Sex: Female

DRUGS (3)
  1. CAPECITABINE [Suspect]
     Indication: BREAST CANCER
     Dosage: FREQUENCY: DAILY, LAST DOSE PRIOR TO SAE: 02 MARCH 2007
     Route: 048
     Dates: start: 20061031
  2. EPIRUBICIN [Suspect]
     Indication: BREAST CANCER
     Dosage: 4 CYCLES RECEIVED.
     Route: 065
  3. PEGFILGRASTIM [Suspect]
     Indication: BREAST CANCER
     Dosage: 4 THERAPY RECEIVED
     Route: 065

REACTIONS (1)
  - ERYTHEMA NODOSUM [None]
